FAERS Safety Report 4907901-6 (Version None)
Quarter: 2006Q1

REPORT INFORMATION
  Report Type: 
  Country: None (occurrence: None)
  Receive Date: 20060208
  Receipt Date: 20060123
  Transmission Date: 20060701
  Serious: Yes (Other)
  Sender: FDA-Public Use
  Company Number: S06-FRA-00257-01

PATIENT
  Sex: Male

DRUGS (3)
  1. CITALOPRAM HYDROBROMIDE [Suspect]
     Dosage: 1 QD PO
     Route: 048
  2. CITALOPRAM HYDROBROMIDE [Suspect]
  3. SEROPLEX (ESCITALOPRAM) [Suspect]

REACTIONS (2)
  - LOCALISED OEDEMA [None]
  - REACTION TO DRUG EXCIPIENTS [None]
